FAERS Safety Report 18972387 (Version 5)
Quarter: 2021Q2

REPORT INFORMATION
  Report Type: Spontaneous
  Country: PT (occurrence: PT)
  Receive Date: 20210305
  Receipt Date: 20210601
  Transmission Date: 20210717
  Serious: Yes (Other)
  Sender: FDA-Public Use
  Company Number: PT-REGENERON PHARMACEUTICALS, INC.-2021-29855

PATIENT

DRUGS (3)
  1. EYLEA [Suspect]
     Active Substance: AFLIBERCEPT
     Dosage: 1 DF, ONCE
     Route: 031
  2. EYLEA [Suspect]
     Active Substance: AFLIBERCEPT
     Dosage: 1 DF, ONCE (LAST LOADING DOSE RECEIVED)
     Route: 031
     Dates: start: 20210517, end: 20210517
  3. EYLEA [Suspect]
     Active Substance: AFLIBERCEPT
     Indication: MACULAR OEDEMA
     Dosage: 1 DF, ONCE, OS
     Route: 031
     Dates: start: 20210224, end: 20210224

REACTIONS (6)
  - Product use in unapproved indication [Unknown]
  - Corneal oedema [Recovered/Resolved]
  - Intraocular pressure increased [Recovered/Resolved]
  - Off label use [Unknown]
  - Device use issue [Unknown]
  - Corneal decompensation [Recovered/Resolved]

NARRATIVE: CASE EVENT DATE: 202102
